FAERS Safety Report 11455109 (Version 8)
Quarter: 2019Q3

REPORT INFORMATION
  Report Type: Report from Study
  Country: US (occurrence: US)
  Receive Date: 20150903
  Receipt Date: 20190821
  Transmission Date: 20191004
  Serious: Yes (Hospitalization, Other)
  Sender: FDA-Public Use
  Company Number: US-ACTELION-A-NJ2015-123383

PATIENT
  Age: 64 Year
  Sex: Female
  Weight: 67.57 kg

DRUGS (3)
  1. TRACLEER [Suspect]
     Active Substance: BOSENTAN
     Indication: PULMONARY ARTERIAL HYPERTENSION
     Dosage: 62.5 MG, BID
     Route: 048
     Dates: start: 20091231
  2. DILTIAZEM. [Concomitant]
     Active Substance: DILTIAZEM
  3. TRACLEER [Suspect]
     Active Substance: BOSENTAN
     Dosage: UNK
     Route: 048

REACTIONS (18)
  - Erythema [Unknown]
  - Weight decreased [Unknown]
  - Facial pain [Unknown]
  - Seizure [Unknown]
  - Fall [Unknown]
  - Jaw fracture [Unknown]
  - Balance disorder [Unknown]
  - Foot fracture [Unknown]
  - Petit mal epilepsy [Unknown]
  - Syncope [Unknown]
  - Injury [Unknown]
  - Femur fracture [Unknown]
  - Loss of consciousness [Unknown]
  - Vein disorder [Unknown]
  - Back injury [Unknown]
  - Central nervous system lupus [Unknown]
  - Systemic lupus erythematosus [Unknown]
  - Fatigue [Unknown]

NARRATIVE: CASE EVENT DATE: 20160504
